FAERS Safety Report 8831219 (Version 1)
Quarter: 2012Q4

REPORT INFORMATION
  Report Type: Spontaneous
  Country: US (occurrence: None)
  Receive Date: 20121005
  Receipt Date: 20121005
  Transmission Date: 20130627
  Serious: Yes (Other)
  Sender: FDA-Public Use
  Company Number: None

PATIENT
  Age: 50 Year
  Sex: Female
  Weight: 78.02 kg

DRUGS (1)
  1. FENTANYL [Suspect]
     Indication: CHRONIC BACK PAIN
     Dosage: 50 mcg/hr, Every 48 hours, Transdermal
     Route: 062
     Dates: start: 20120601, end: 20120928

REACTIONS (21)
  - Chemical burn of skin [None]
  - Scab [None]
  - Scar [None]
  - Swelling [None]
  - Weight increased [None]
  - Vision blurred [None]
  - Arthralgia [None]
  - Arthritis [None]
  - Fatigue [None]
  - Irritability [None]
  - Depression [None]
  - Drug ineffective [None]
  - Blood pressure decreased [None]
  - Heart rate increased [None]
  - Cardiac murmur [None]
  - Heart valve incompetence [None]
  - Withdrawal syndrome [None]
  - Treatment noncompliance [None]
  - Hyperhidrosis [None]
  - Crying [None]
  - Restless legs syndrome [None]
